FAERS Safety Report 21409821 (Version 1)
Quarter: 2022Q4

REPORT INFORMATION
  Report Type: Spontaneous
  Country: RO (occurrence: RO)
  Receive Date: 20221005
  Receipt Date: 20221005
  Transmission Date: 20230112
  Serious: Yes (Other)
  Sender: FDA-Public Use
  Company Number: RO-PFIZER INC-PV202200071822

PATIENT
  Age: 78 Year
  Sex: Male
  Weight: 60 kg

DRUGS (6)
  1. ENBREL [Suspect]
     Active Substance: ETANERCEPT
     Indication: Rheumatoid arthritis
     Dosage: 50 MILLIGRAM, QWK
     Route: 065
     Dates: start: 20081101
  2. ENBREL [Suspect]
     Active Substance: ETANERCEPT
     Dosage: 50 MILLIGRAM
     Route: 065
     Dates: start: 20200911, end: 20220308
  3. ENBREL [Suspect]
     Active Substance: ETANERCEPT
     Dosage: 50 MILLIGRAM
     Route: 065
     Dates: start: 20220329, end: 20220329
  4. FOSAVANCE [Concomitant]
     Active Substance: ALENDRONATE SODIUM\CHOLECALCIFEROL
     Indication: Osteoporosis
     Dosage: 1 DOSAGE FORM, QWK
     Dates: start: 2010
  5. METHOTREXATE [Concomitant]
     Active Substance: METHOTREXATE
     Indication: Rheumatoid arthritis
     Dosage: 15 MILLIGRAM
     Dates: start: 20070701, end: 20130315
  6. GLICLAZIDE [Concomitant]
     Active Substance: GLICLAZIDE
     Indication: Diabetes mellitus
     Dosage: 60 MILLIGRAM

REACTIONS (4)
  - Cataract [Unknown]
  - Interferon gamma release assay positive [Unknown]
  - Osteoporosis [Unknown]
  - Spinal osteoarthritis [Unknown]

NARRATIVE: CASE EVENT DATE: 20100101
